FAERS Safety Report 24301916 (Version 2)
Quarter: 2025Q1

REPORT INFORMATION
  Report Type: Spontaneous
  Country: CA (occurrence: CA)
  Receive Date: 20240910
  Receipt Date: 20250120
  Transmission Date: 20250409
  Serious: Yes (Death)
  Sender: SPECGX
  Company Number: CA-SPECGX-T202401856

PATIENT
  Age: 48 Year
  Sex: Male

DRUGS (7)
  1. METHADOSE [Suspect]
     Active Substance: METHADONE HYDROCHLORIDE
     Indication: Product used for unknown indication
     Route: 065
  2. ACETONE [Suspect]
     Active Substance: ACETONE
     Indication: Product used for unknown indication
     Route: 065
  3. BENZOYLECGONINE [Suspect]
     Active Substance: BENZOYLECGONINE
     Indication: Product used for unknown indication
     Route: 065
  4. 3-HYDROXYBUTYRIC ACID, (+/-)- [Suspect]
     Active Substance: 3-HYDROXYBUTYRIC ACID, (+/-)-
     Indication: Product used for unknown indication
     Route: 065
  5. CAFFEINE [Suspect]
     Active Substance: CAFFEINE
     Indication: Product used for unknown indication
     Route: 065
  6. DIPHENHYDRAMINE [Suspect]
     Active Substance: DIPHENHYDRAMINE
     Indication: Product used for unknown indication
     Route: 065
  7. FENTANYL [Suspect]
     Active Substance: FENTANYL
     Indication: Product used for unknown indication
     Route: 065

REACTIONS (2)
  - Ketoacidosis [Fatal]
  - Toxicity to various agents [Fatal]
